FAERS Safety Report 5593977-2 (Version None)
Quarter: 2008Q1

REPORT INFORMATION
  Report Type: 
  Country: None (occurrence: None)
  Receive Date: 20080114
  Receipt Date: 20071227
  Transmission Date: 20080703
  Serious: Yes (Hospitalization)
  Sender: FDA-Public Use
  Company Number: 2007JP004018

PATIENT
  Age: 65 Year
  Sex: Female
  Weight: 56.8 kg

DRUGS (6)
  1. PROGRAF [Suspect]
     Indication: RHEUMATOID ARTHRITIS
     Dosage: 3 MG, UID/QD, ORAL; 1.5 MG, UID/QD, ORAL
     Route: 048
     Dates: start: 20060330, end: 20070516
  2. PROGRAF [Suspect]
     Indication: RHEUMATOID ARTHRITIS
     Dosage: 3 MG, UID/QD, ORAL; 1.5 MG, UID/QD, ORAL
     Route: 048
     Dates: start: 20070517, end: 20070530
  3. BASEN (VOGLIBOSE) [Concomitant]
  4. MAGNESIUM OXIDE (MAGNESIUM OXIDE) [Concomitant]
  5. BOUFUUTSUUSHOUSAN (HERBAL EXTRACT NOS) [Concomitant]
  6. TSUUDOUSAN (HERBAL EXTRACT NOS) [Concomitant]

REACTIONS (4)
  - BLOOD GLUCOSE ABNORMAL [None]
  - CONDITION AGGRAVATED [None]
  - HEPATIC FUNCTION ABNORMAL [None]
  - HEPATITIS C [None]
